FAERS Safety Report 11842862 (Version 1)
Quarter: 2015Q4

REPORT INFORMATION
  Report Type: Spontaneous
  Country: US (occurrence: US)
  Receive Date: 20151216
  Receipt Date: 20151216
  Transmission Date: 20160305
  Serious: No
  Sender: FDA-Public Use
  Company Number: US-BAUSCH-BL-2014-010052

PATIENT
  Sex: Female

DRUGS (2)
  1. ENOXAPARIN [Concomitant]
     Active Substance: ENOXAPARIN
     Indication: PRODUCT USED FOR UNKNOWN INDICATION
  2. DILTIAZEM [Suspect]
     Active Substance: DILTIAZEM
     Indication: PRODUCT USED FOR UNKNOWN INDICATION
     Route: 048

REACTIONS (6)
  - Dyspnoea [Recovered/Resolved]
  - Injection site bruising [Not Recovered/Not Resolved]
  - Nausea [Recovered/Resolved]
  - Contusion [Not Recovered/Not Resolved]
  - Paraesthesia oral [Recovered/Resolved]
  - Syncope [Unknown]
